FAERS Safety Report 21528652 (Version 2)
Quarter: 2022Q4

REPORT INFORMATION
  Report Type: Report from Study
  Country: US (occurrence: US)
  Receive Date: 20221031
  Receipt Date: 20221216
  Transmission Date: 20230113
  Serious: Yes (Hospitalization, Other)
  Sender: FDA-Public Use
  Company Number: US-GILEAD-2022-0603095

PATIENT
  Age: 85 Year
  Sex: Female

DRUGS (7)
  1. AMBRISENTAN [Suspect]
     Active Substance: AMBRISENTAN
     Indication: Pulmonary hypertension
     Dosage: 5 MG, QD
     Route: 065
     Dates: start: 20150915
  2. METOPROLOL TARTRATE [Concomitant]
     Active Substance: METOPROLOL TARTRATE
  3. ALLOPURINOL [Concomitant]
     Active Substance: ALLOPURINOL
  4. ALBUTEROL [Concomitant]
     Active Substance: ALBUTEROL
  5. TADALAFIL [Concomitant]
     Active Substance: TADALAFIL
  6. MIDODRINE [Concomitant]
     Active Substance: MIDODRINE
  7. VITAMIN C [Concomitant]
     Active Substance: ASCORBIC ACID

REACTIONS (1)
  - Cardiac failure [Recovered/Resolved]
